FAERS Safety Report 21546193 (Version 2)
Quarter: 2023Q1

REPORT INFORMATION
  Report Type: Report from Study
  Country: US (occurrence: US)
  Receive Date: 20221103
  Receipt Date: 20230308
  Transmission Date: 20230417
  Serious: No
  Sender: FDA-Public Use
  Company Number: US-ABBVIE-4139185

PATIENT
  Sex: Female

DRUGS (1)
  1. RINVOQ [Suspect]
     Active Substance: UPADACITINIB
     Indication: Product used for unknown indication
     Route: 048
     Dates: start: 20220608

REACTIONS (4)
  - Skin fissures [Recovering/Resolving]
  - Condition aggravated [Not Recovered/Not Resolved]
  - Inflammation [Recovering/Resolving]
  - Erythema [Recovering/Resolving]
